FAERS Safety Report 18203333 (Version 1)
Quarter: 2020Q3

REPORT INFORMATION
  Report Type: Spontaneous
  Country: US (occurrence: US)
  Receive Date: 20200827
  Receipt Date: 20200827
  Transmission Date: 20201103
  Serious: Yes (Other)
  Sender: FDA-Public Use
  Company Number: US-ADVANZ PHARMA-202008008179

PATIENT

DRUGS (3)
  1. PREDNISOLONE. [Suspect]
     Active Substance: PREDNISOLONE
     Indication: VOGT-KOYANAGI-HARADA DISEASE
     Dosage: THREE TIMES DAILY IN BOTH EYES (EYE DROPS)
  2. PREDNISONE. [Suspect]
     Active Substance: PREDNISONE
     Indication: VOGT-KOYANAGI-HARADA DISEASE
     Dosage: 25 MG, QD
  3. MYCOPHENOLATE MOFETIL. [Concomitant]
     Active Substance: MYCOPHENOLATE MOFETIL
     Indication: VOGT-KOYANAGI-HARADA DISEASE
     Dosage: 500 MG, BID

REACTIONS (5)
  - Condition aggravated [Recovered/Resolved]
  - Necrosis [Unknown]
  - Insomnia [Unknown]
  - Drug ineffective [Unknown]
  - Drug intolerance [Unknown]
